FAERS Safety Report 5929714-9 (Version None)
Quarter: 2008Q3

REPORT INFORMATION
  Report Type: 
  Country: None (occurrence: None)
  Receive Date: 20080929
  Receipt Date: 20080505
  Transmission Date: 20090109
  Serious: No
  Sender: FDA-Public Use
  Company Number: PHEH2008US04325

PATIENT
  Sex: Male

DRUGS (1)
  1. TASIGNA [Suspect]
     Dates: start: 20080401

REACTIONS (1)
  - WHITE BLOOD CELL COUNT DECREASED [None]
